FAERS Safety Report 6532646-9 (Version None)
Quarter: 2010Q1

REPORT INFORMATION
  Report Type: 
  Country: None (occurrence: None)
  Receive Date: 20100105
  Receipt Date: 20091224
  Transmission Date: 20100710
  Serious: Yes (Life-Threatening)
  Sender: FDA-Public Use
  Company Number: AE-2009-340

PATIENT
  Age: 76 Year
  Sex: Female

DRUGS (3)
  1. FUROSEMIDE [Suspect]
     Indication: HYPERTENSION
     Dosage: 20 MG, QD
  2. VERAPAMIL [Suspect]
     Dosage: 480MG, DAILY
  3. GLICLAZIDE [Suspect]
     Indication: DIABETES MELLITUS
     Dosage: 30MG, QD

REACTIONS (12)
  - ATRIAL FIBRILLATION [None]
  - BLOOD PRESSURE IMMEASURABLE [None]
  - BRADYARRHYTHMIA [None]
  - CARDIOTOXICITY [None]
  - DIZZINESS [None]
  - FALL [None]
  - HYPERHIDROSIS [None]
  - HYPERMAGNESAEMIA [None]
  - ISCHAEMIA [None]
  - NODAL RHYTHM [None]
  - SICK SINUS SYNDROME [None]
  - THERAPEUTIC AGENT TOXICITY [None]
